FAERS Safety Report 8175118-0 (Version None)
Quarter: 2012Q1

REPORT INFORMATION
  Report Type: 
  Country: None (occurrence: None)
  Receive Date: 20120227
  Receipt Date: 20120223
  Transmission Date: 20120608
  Serious: Yes (Other)
  Sender: FDA-Public Use
  Company Number: ADR-2012-00327

PATIENT
  Age: 49 Year
  Sex: Male

DRUGS (1)
  1. LIORESAL [Suspect]
     Dosage: SEE B5

REACTIONS (4)
  - HYPOTONIA [None]
  - BLOOD CREATINE PHOSPHOKINASE INCREASED [None]
  - FIBROSIS [None]
  - MUSCLE SPASTICITY [None]
